FAERS Safety Report 8553012-0 (Version None)
Quarter: 2012Q3

REPORT INFORMATION
  Report Type: 
  Country: None (occurrence: None)
  Receive Date: 20120731
  Receipt Date: 20120723
  Transmission Date: 20120928
  Serious: Yes (Other)
  Sender: FDA-Public Use
  Company Number: DE-BAYER-2012-016198

PATIENT
  Age: 50 Year
  Sex: Female
  Weight: 56 kg

DRUGS (2)
  1. ESTRADIOL VALERATE/DIENOGEST [Suspect]
     Indication: ORAL CONTRACEPTION
     Dosage: 1 DF, QD
     Route: 048
     Dates: start: 20120201, end: 20120301
  2. LEVOTHYROXINE SODIUM [Concomitant]

REACTIONS (7)
  - PRURITUS [None]
  - SWELLING FACE [None]
  - METRORRHAGIA [None]
  - ERYTHEMA [None]
  - SPEECH DISORDER [None]
  - DEPRESSION [None]
  - HYPERSENSITIVITY [None]
